FAERS Safety Report 19965329 (Version 1)
Quarter: 2021Q4

REPORT INFORMATION
  Report Type: Spontaneous
  Country: EG (occurrence: EG)
  Receive Date: 20211018
  Receipt Date: 20211018
  Transmission Date: 20220303
  Serious: Yes (Hospitalization)
  Sender: FDA-Public Use
  Company Number: EG-ROCHE-2932660

PATIENT
  Age: 37 Year
  Sex: Male
  Weight: 95 kg

DRUGS (5)
  1. ACTEMRA [Suspect]
     Active Substance: TOCILIZUMAB
     Indication: COVID-19
     Dosage: 400MG/20 ML VIAL WITH A DOSE OF 400?MG /12 HR
     Route: 042
     Dates: start: 20210920
  2. ACTEMRA [Suspect]
     Active Substance: TOCILIZUMAB
     Indication: Cytokine storm
  3. SOLU-MEDROL [Concomitant]
     Active Substance: METHYLPREDNISOLONE SODIUM SUCCINATE
     Indication: Cytokine storm
     Dosage: 375 MG (2 CM )ONCE DAILY BY IV INFUSION STARTING FROM 18/09/2021 TO 26/9/2021.
     Route: 042
     Dates: start: 20210918
  4. REMDESIVIR [Concomitant]
     Active Substance: REMDESIVIR
     Indication: COVID-19
     Dosage: IV INFUSION ON THE 1ST DAY (19/09/2021) FOLLOWED?BY 100MG/24 HRS. ON THE FOLLOWING DAYS FROM 18/9/20
     Route: 042
     Dates: start: 20210919
  5. COLCHICINE [Concomitant]
     Active Substance: COLCHICINE
     Dosage: ONE TABLET /12 HR ORALLY FROM 18/9/2021 TO 25/9/2021.
     Route: 048
     Dates: start: 20210918

REACTIONS (5)
  - Hypersensitivity [Unknown]
  - Dyspnoea [Unknown]
  - Hyperhidrosis [Unknown]
  - Erythema [Unknown]
  - Off label use [Unknown]

NARRATIVE: CASE EVENT DATE: 20210920
